FAERS Safety Report 19404676 (Version 1)
Quarter: 2021Q2

REPORT INFORMATION
  Report Type: Spontaneous
  Country: PL (occurrence: PL)
  Receive Date: 20210611
  Receipt Date: 20210611
  Transmission Date: 20210717
  Serious: Yes (Death, Other)
  Sender: FDA-Public Use
  Company Number: PL-PFIZER INC-2009312927

PATIENT
  Age: 43 Year
  Sex: Male

DRUGS (6)
  1. DAUNORUBICIN HCL [Suspect]
     Active Substance: DAUNORUBICIN HYDROCHLORIDE
     Dosage: UNK
  2. CYCLOSPORINE A [Suspect]
     Active Substance: CYCLOSPORINE
     Dosage: UNK
  3. CYTARABINE. [Suspect]
     Active Substance: CYTARABINE
     Dosage: UNK
  4. METHOTREXATE. [Suspect]
     Active Substance: METHOTREXATE
     Dosage: UNK
  5. BUSULFAN. [Suspect]
     Active Substance: BUSULFAN
     Dosage: UNK
  6. CYCLOPHOSPHAMIDE. [Suspect]
     Active Substance: CYCLOPHOSPHAMIDE
     Dosage: 120 MG/KG

REACTIONS (5)
  - Multiple organ dysfunction syndrome [Fatal]
  - Pulmonary oedema [Not Recovered/Not Resolved]
  - Graft versus host disease [Not Recovered/Not Resolved]
  - Hypovolaemic shock [Fatal]
  - Pseudomonas infection [Not Recovered/Not Resolved]
